FAERS Safety Report 13333407 (Version 1)
Quarter: 2017Q1

REPORT INFORMATION
  Report Type: Spontaneous
  Country: US (occurrence: US)
  Receive Date: 20170314
  Receipt Date: 20170314
  Transmission Date: 20170428
  Serious: Yes (Hospitalization, Other)
  Sender: FDA-Public Use
  Company Number: US-ELI_LILLY_AND_COMPANY-US201703003071

PATIENT
  Age: 55 Year
  Sex: Male

DRUGS (3)
  1. ALIMTA [Suspect]
     Active Substance: PEMETREXED DISODIUM
     Indication: NON-SMALL CELL LUNG CANCER
     Dosage: 870 MG, UNKNOWN
     Route: 065
     Dates: start: 20150622, end: 20160829
  2. GEMZAR [Suspect]
     Active Substance: GEMCITABINE HYDROCHLORIDE
     Indication: NON-SMALL CELL LUNG CANCER
     Dosage: 1500 MG, UNKNOWN
     Route: 065
     Dates: start: 20160829
  3. CARBOPLATIN. [Concomitant]
     Active Substance: CARBOPLATIN
     Indication: NON-SMALL CELL LUNG CANCER
     Dosage: UNK, UNKNOWN
     Route: 065
     Dates: start: 20150622, end: 20160829

REACTIONS (11)
  - Nausea [Unknown]
  - Dizziness [Unknown]
  - Anaemia [Unknown]
  - Decreased appetite [Unknown]
  - Muscular weakness [Unknown]
  - Oral candidiasis [Unknown]
  - Jaundice [Unknown]
  - Fatigue [Unknown]
  - Neutrophil count decreased [Unknown]
  - Off label use [Unknown]
  - Diarrhoea [Unknown]

NARRATIVE: CASE EVENT DATE: 20150707
